FAERS Safety Report 5904346-7 (Version None)
Quarter: 2008Q4

REPORT INFORMATION
  Report Type: 
  Country: None (occurrence: None)
  Receive Date: 20081001
  Receipt Date: 20080924
  Transmission Date: 20090506
  Serious: Yes (Other)
  Sender: FDA-Public Use
  Company Number: PHEH2007US03697

PATIENT
  Sex: Female

DRUGS (18)
  1. ZOMETA [Suspect]
  2. XOPENEX [Concomitant]
  3. SPIRIVA [Concomitant]
  4. K-DUR [Concomitant]
  5. ATROVENT [Concomitant]
  6. LASIX [Concomitant]
  7. WELLBUTRIN [Concomitant]
  8. LABETALOL HCL [Concomitant]
  9. NEURONTIN [Concomitant]
  10. THEOPHYLLINE [Concomitant]
  11. ALBUTEROL [Concomitant]
  12. PENICILLIN [Concomitant]
  13. OXYCONTIN [Concomitant]
  14. ROXICODONE [Concomitant]
  15. BACLOFEN [Concomitant]
  16. PREDNISONE [Concomitant]
  17. OMNICEF [Concomitant]
  18. CIPRO [Concomitant]

REACTIONS (10)
  - ANAEMIA [None]
  - ANXIETY [None]
  - DECREASED INTEREST [None]
  - INJURY [None]
  - OEDEMA PERIPHERAL [None]
  - OSTEOMYELITIS [None]
  - OSTEONECROSIS [None]
  - PAIN [None]
  - POSTMENOPAUSE [None]
  - TOBACCO USER [None]
